FAERS Safety Report 4320222-8 (Version None)
Quarter: 2004Q1

REPORT INFORMATION
  Report Type: 
  Country: None (occurrence: None)
  Receive Date: 20040317
  Receipt Date: 20040308
  Transmission Date: 20041129
  Serious: Yes (Death, Life-Threatening)
  Sender: FDA-Public Use
  Company Number: 2004AP01223

PATIENT
  Age: 74 Year
  Sex: Male

DRUGS (22)
  1. IRESSA [Suspect]
     Indication: LUNG ADENOCARCINOMA
     Dosage: 250 MG DAILY PO
     Route: 048
     Dates: start: 20020925, end: 20030205
  2. IRESSA [Suspect]
     Indication: NON-SMALL CELL LUNG CANCER
     Dosage: 250 MG DAILY PO
     Route: 048
     Dates: start: 20020925, end: 20030205
  3. IRESSA [Suspect]
     Indication: LUNG ADENOCARCINOMA
     Dosage: 250 MG DAILY PO
     Route: 048
     Dates: start: 20031009
  4. IRESSA [Suspect]
     Indication: NON-SMALL CELL LUNG CANCER
     Dosage: 250 MG DAILY PO
     Route: 048
     Dates: start: 20031009
  5. ASPIRIN [Suspect]
     Indication: ANGINA PECTORIS
     Dosage: 100 MG DAILY PO
     Route: 048
     Dates: start: 20031017
  6. ISOSORBIDE MONONITRATE [Suspect]
     Indication: ANGINA PECTORIS
     Dosage: 40 MG DAILY PO
     Route: 048
     Dates: start: 20031017
  7. TICLOPIDINE HCL [Suspect]
     Indication: ANGINA PECTORIS
     Dosage: 100 MG DAILY PO
     Route: 048
     Dates: start: 20031017
  8. CISPLATIN [Concomitant]
  9. VINDESINE [Concomitant]
  10. MITOMYCIN [Concomitant]
  11. CARBOPLATIN [Concomitant]
  12. GEMCITABINE [Concomitant]
  13. VINORELBINE TARTRATE [Concomitant]
  14. IRINOTECAN [Concomitant]
  15. LANIRAPID [Concomitant]
  16. FERO-GRAD [Concomitant]
  17. CINAL [Concomitant]
  18. MAGNESIUM OXIDE [Concomitant]
  19. CEFZON [Concomitant]
  20. GASTER [Concomitant]
  21. PONTAL [Concomitant]
  22. ISALON [Concomitant]

REACTIONS (13)
  - ABDOMINAL PAIN [None]
  - BLOOD PRESSURE DECREASED [None]
  - BRADYCARDIA [None]
  - EPISTAXIS [None]
  - GASTRITIS [None]
  - INFECTION [None]
  - INJURY ASPHYXIATION [None]
  - PNEUMONIA [None]
  - PNEUMONIA ASPIRATION [None]
  - PULSE ABSENT [None]
  - PYREXIA [None]
  - VOCAL CORD PARALYSIS [None]
  - WHITE BLOOD CELL COUNT DECREASED [None]
